FAERS Safety Report 7097855-1 (Version None)
Quarter: 2010Q4

REPORT INFORMATION
  Report Type: 
  Country: None (occurrence: None)
  Receive Date: 20101112
  Receipt Date: 20101014
  Transmission Date: 20110411
  Serious: Yes (Hospitalization)
  Sender: FDA-Public Use
  Company Number: US-BAYER-201023419NA

PATIENT
  Age: 31 Year
  Sex: Female
  Weight: 104 kg

DRUGS (4)
  1. YASMIN [Suspect]
     Indication: CONTRACEPTION
     Route: 048
     Dates: start: 20030904, end: 20050901
  2. NASACORT AQ [Concomitant]
     Route: 045
     Dates: start: 20050927
  3. IBUPROFEN [Concomitant]
  4. LABETALOL HCL [Concomitant]
     Indication: HYPERTENSION

REACTIONS (3)
  - DEEP VEIN THROMBOSIS [None]
  - OEDEMA PERIPHERAL [None]
  - PAIN IN EXTREMITY [None]
